FAERS Safety Report 4288632-5 (Version None)
Quarter: 2004Q1

REPORT INFORMATION
  Report Type: 
  Country: None (occurrence: None)
  Receive Date: 20040209
  Receipt Date: 20040128
  Transmission Date: 20041129
  Serious: Yes (Other)
  Sender: FDA-Public Use
  Company Number: FR-BRISTOL-MYERS SQUIBB COMPANY-12490173

PATIENT
  Age: 34 Year
  Sex: Male

DRUGS (4)
  1. DIDANOSINE [Suspect]
     Indication: ACQUIRED IMMUNODEFICIENCY SYNDROME
     Dates: start: 20001001, end: 20030101
  2. LAMIVUDINE [Suspect]
     Indication: ACQUIRED IMMUNODEFICIENCY SYNDROME
     Dates: start: 20001001, end: 20030101
  3. TENOFOVIR [Suspect]
     Indication: ACQUIRED IMMUNODEFICIENCY SYNDROME
     Dates: start: 20010301, end: 20030101
  4. LOPINAVIR + RITONAVIR [Suspect]
     Indication: ACQUIRED IMMUNODEFICIENCY SYNDROME
     Dosage: 800/200 MG
     Dates: start: 20010301, end: 20030101

REACTIONS (9)
  - BLOOD GLUCOSE DECREASED [None]
  - BLOOD SODIUM DECREASED [None]
  - DEHYDRATION [None]
  - FANCONI SYNDROME ACQUIRED [None]
  - HYPERTENSION [None]
  - HYPOCALCAEMIA [None]
  - METABOLIC ACIDOSIS [None]
  - NEUROPATHY [None]
  - TACHYCARDIA [None]
